FAERS Safety Report 4789136-3 (Version None)
Quarter: 2005Q4

REPORT INFORMATION
  Report Type: 
  Country: None (occurrence: None)
  Receive Date: 20051005
  Receipt Date: 20050930
  Transmission Date: 20060501
  Serious: Yes (Hospitalization)
  Sender: FDA-Public Use
  Company Number: FR-MERCK-0509FRA00099

PATIENT
  Age: 50 Year
  Sex: Male

DRUGS (4)
  1. PRIMAXIN [Suspect]
     Route: 042
     Dates: start: 20050814, end: 20050818
  2. PRIMAXIN [Suspect]
     Route: 042
     Dates: start: 20050830, end: 20050830
  3. PRIMAXIN [Suspect]
     Route: 042
     Dates: start: 20050831, end: 20050901
  4. CIPROFLOXACIN HYDROCHLORIDE [Concomitant]
     Route: 042
     Dates: start: 20050830, end: 20050831

REACTIONS (3)
  - AGGRESSION [None]
  - CONFUSIONAL STATE [None]
  - SOMNOLENCE [None]
